FAERS Safety Report 9741183 (Version 2)
Quarter: 2013Q4

REPORT INFORMATION
  Report Type: Spontaneous
  Country: US (occurrence: US)
  Receive Date: 20131209
  Receipt Date: 20131213
  Transmission Date: 20140711
  Serious: Yes (Other)
  Sender: FDA-Public Use
  Company Number: US-TEVA-449227USA

PATIENT
  Sex: Female

DRUGS (1)
  1. PARAGARD 380A [Suspect]
     Indication: CONTRACEPTION
     Route: 015
     Dates: start: 20100816, end: 20131203

REACTIONS (2)
  - Medical device complication [Recovered/Resolved]
  - Device dislocation [Unknown]
